FAERS Safety Report 5884959-1 (Version None)
Quarter: 2008Q3

REPORT INFORMATION
  Report Type: 
  Country: None (occurrence: None)
  Receive Date: 20080916
  Receipt Date: 20080909
  Transmission Date: 20090109
  Serious: Yes (Other)
  Sender: FDA-Public Use
  Company Number: B0526712A

PATIENT
  Age: 74 Year
  Sex: Male

DRUGS (4)
  1. ZANTAC [Suspect]
     Indication: DUODENAL ULCER
     Dosage: 150MG PER DAY
     Route: 048
     Dates: start: 20080602, end: 20080608
  2. PREDNISOLONE [Concomitant]
     Indication: SYSTEMIC LUPUS ERYTHEMATOSUS
     Route: 048
     Dates: start: 20080414
  3. COTRIM [Concomitant]
     Route: 048
     Dates: start: 20080411
  4. LANSOPRAZOLE [Concomitant]
     Route: 048
     Dates: start: 20080411

REACTIONS (1)
  - PANCYTOPENIA [None]
